FAERS Safety Report 4325415-1 (Version None)
Quarter: 2004Q1

REPORT INFORMATION
  Report Type: 
  Country: None (occurrence: None)
  Receive Date: 20040324
  Receipt Date: 20040312
  Transmission Date: 20041129
  Serious: Yes (Hospitalization)
  Sender: FDA-Public Use
  Company Number: GB-JNJFOC-20040302948

PATIENT
  Age: 69 Year
  Sex: Female

DRUGS (7)
  1. REMICADE [Suspect]
     Indication: RHEUMATOID ARTHRITIS
     Dosage: INTRAVENOUS
     Route: 042
     Dates: start: 20021001
  2. PREDNISOLONE [Concomitant]
  3. HYDROXYCHLOROQUINE SULFATE [Concomitant]
  4. ETORICOXIB (NSAID'S) [Concomitant]
  5. METHOTREXATE [Concomitant]
  6. FOLATE (FOLATE SODIUM) [Concomitant]
  7. TYLEX (TYLEX) [Concomitant]

REACTIONS (1)
  - TENDON RUPTURE [None]
